FAERS Safety Report 12395751 (Version 1)
Quarter: 2016Q2

REPORT INFORMATION
  Report Type: Spontaneous
  Country: US (occurrence: US)
  Receive Date: 20160523
  Receipt Date: 20160523
  Transmission Date: 20160815
  Serious: No
  Sender: FDA-Public Use
  Company Number: US-BANPHARM-20164739

PATIENT
  Sex: Female

DRUGS (1)
  1. IBUPROFEN CAPSULES 200 MG [Suspect]
     Active Substance: IBUPROFEN
     Indication: PAIN
     Route: 048
     Dates: start: 20160229, end: 20160229

REACTIONS (3)
  - Throat irritation [Recovering/Resolving]
  - Oral discomfort [Recovering/Resolving]
  - Product physical issue [None]

NARRATIVE: CASE EVENT DATE: 20160229
